FAERS Safety Report 19392129 (Version 1)
Quarter: 2021Q2

REPORT INFORMATION
  Report Type: Spontaneous
  Country: FR (occurrence: FR)
  Receive Date: 20210608
  Receipt Date: 20210608
  Transmission Date: 20210717
  Serious: Yes (Hospitalization)
  Sender: FDA-Public Use
  Company Number: FR-PFIZER INC-2021608510

PATIENT
  Age: 59 Year
  Sex: Female
  Weight: 60 kg

DRUGS (4)
  1. PANTOPRAZOLE [Suspect]
     Active Substance: PANTOPRAZOLE
     Dosage: UNK
  2. METEOXANE [PHLOROGLUCINOL;SIMETICONE] [Suspect]
     Active Substance: DIMETHICONE\PHLOROGLUCINOL
     Dosage: UNK
  3. METEOXANE [PHLOROGLUCINOL;SIMETICONE] [Suspect]
     Active Substance: DIMETHICONE\PHLOROGLUCINOL
     Indication: DYSPEPSIA
     Dosage: 2 DF, 1X/DAY
     Route: 048
     Dates: start: 20210403
  4. PANTOPRAZOLE [Suspect]
     Active Substance: PANTOPRAZOLE
     Indication: DYSPEPSIA
     Dosage: UNK UNK, QD
     Route: 048
     Dates: start: 20210403

REACTIONS (1)
  - Hepatitis cholestatic [Recovering/Resolving]

NARRATIVE: CASE EVENT DATE: 20210404
